FAERS Safety Report 4666211-5 (Version None)
Quarter: 2005Q2

REPORT INFORMATION
  Report Type: 
  Country: None (occurrence: None)
  Receive Date: 20050517
  Receipt Date: 20050517
  Transmission Date: 20051028
  Serious: Yes (Life-Threatening, Hospitalization)
  Sender: FDA-Public Use
  Company Number: None

PATIENT
  Age: 52 Year
  Sex: Female
  Weight: 47.6277 kg

DRUGS (5)
  1. COUMADIN [Suspect]
     Indication: ANTICOAGULANT THERAPY
     Dosage: 25MG TU FRI; 5 MG M W TH S SU
  2. AUGMENTIN '125' [Suspect]
     Indication: SINUSITIS
     Dosage: 1 PO TID
     Route: 048
  3. KLONOPIN [Concomitant]
  4. VICODIN [Concomitant]
  5. ZOLOFT [Concomitant]

REACTIONS (2)
  - HEADACHE [None]
  - ORAL INTAKE REDUCED [None]
